FAERS Safety Report 7055770-3 (Version None)
Quarter: 2010Q4

REPORT INFORMATION
  Report Type: 
  Country: None (occurrence: None)
  Receive Date: 20101021
  Receipt Date: 20101012
  Transmission Date: 20110411
  Serious: Yes (Other)
  Sender: FDA-Public Use
  Company Number: US-JNJFOC-20101004901

PATIENT
  Age: 38 Year

DRUGS (1)
  1. ORTHOCLONE OKT3 [Suspect]
     Indication: PROPHYLAXIS AGAINST TRANSPLANT REJECTION
     Route: 065

REACTIONS (5)
  - BACTERIAL TEST [None]
  - CHILLS [None]
  - DIARRHOEA [None]
  - PYREXIA [None]
  - WHEEZING [None]
